FAERS Safety Report 12553310 (Version 1)
Quarter: 2016Q3

REPORT INFORMATION
  Report Type: Spontaneous
  Country: FR (occurrence: FR)
  Receive Date: 20160713
  Receipt Date: 20160713
  Transmission Date: 20161109
  Serious: Yes (Hospitalization)
  Sender: FDA-Public Use
  Company Number: FR-JNJFOC-20160703774

PATIENT
  Age: 21 Year
  Sex: Male
  Weight: 50 kg

DRUGS (4)
  1. PREZISTA [Suspect]
     Active Substance: DARUNAVIR ETHANOLATE
     Indication: HIV INFECTION
     Dosage: 1 IN THE MORNING AND 1 IN THE EVENING
     Route: 048
  2. SUSTIVA [Suspect]
     Active Substance: EFAVIRENZ
     Indication: HIV INFECTION
     Dosage: 1 IN THE EVENING
     Route: 048
  3. NORVIR [Suspect]
     Active Substance: RITONAVIR
     Indication: HIV INFECTION
     Dosage: 1 IN THE MORNING AND 1 IN THE EVENING
     Route: 065
  4. BACLOFENE [Suspect]
     Active Substance: BACLOFEN
     Indication: HIV INFECTION
     Dosage: 1 IN THE MORNING 1 AT NOON AND 1 IN THE EVENING
     Route: 048

REACTIONS (2)
  - Hypoglycaemia [Recovered/Resolved]
  - Hypothermia [Recovered/Resolved]

NARRATIVE: CASE EVENT DATE: 20160415
